FAERS Safety Report 19825543 (Version 1)
Quarter: 2021Q3

REPORT INFORMATION
  Report Type: Spontaneous
  Country: US (occurrence: US)
  Receive Date: 20210913
  Receipt Date: 20210913
  Transmission Date: 20211014
  Serious: Yes (Hospitalization)
  Sender: FDA-Public Use
  Company Number: None

PATIENT
  Age: 94 Year
  Sex: Female

DRUGS (4)
  1. RETACRIT [Suspect]
     Active Substance: EPOETIN ALFA-EPBX
     Indication: CHRONIC KIDNEY DISEASE
     Dosage: 4,000 IUNITS :M?W?F  SQ?
     Route: 058
     Dates: start: 20210702
  2. GENTAMICIN. [Concomitant]
     Active Substance: GENTAMICIN
  3. FUROSEMIDE. [Concomitant]
     Active Substance: FUROSEMIDE
  4. POT CL MICRO ER [Concomitant]

REACTIONS (1)
  - Hospitalisation [None]

NARRATIVE: CASE EVENT DATE: 20210908
